APPROVED DRUG PRODUCT: FLUOROURACIL
Active Ingredient: FLUOROURACIL
Strength: 50MG/ML
Dosage Form/Route: INJECTABLE;INJECTION
Application: A089508 | Product #001
Applicant: BEDFORD LABORATORIES DIV BEN VENUE LABORATORIES INC
Approved: Jan 26, 1988 | RLD: No | RS: No | Type: DISCN